FAERS Safety Report 20313987 (Version 1)
Quarter: 2022Q1

REPORT INFORMATION
  Report Type: Spontaneous
  Country: US (occurrence: US)
  Receive Date: 20220109
  Receipt Date: 20220109
  Transmission Date: 20220423
  Serious: No
  Sender: FDA-Public Use
  Company Number: US-SA-SAC20220103000561

PATIENT
  Age: 47 Year
  Sex: Female

DRUGS (6)
  1. DUPIXENT [Suspect]
     Active Substance: DUPILUMAB
     Indication: Dermatitis atopic
     Dosage: 300 MG, QOW
     Route: 058
     Dates: start: 202111
  2. FLUOCINONIDE [Concomitant]
     Active Substance: FLUOCINONIDE
  3. VITAMINS NOS [Concomitant]
     Active Substance: VITAMINS
  4. VENLAFAXINE HCL [Concomitant]
     Active Substance: VENLAFAXINE HYDROCHLORIDE
     Dosage: IRON 159(45)MG TABLET ER,
  5. AMITRIPTYLINE HYDROCHLORIDE [Concomitant]
     Active Substance: AMITRIPTYLINE HYDROCHLORIDE
  6. IRON [Concomitant]
     Active Substance: IRON
     Dosage: IRON 159(45)MG TABLET ER

REACTIONS (2)
  - Eczema [Not Recovered/Not Resolved]
  - Drug ineffective [Unknown]
